FAERS Safety Report 4807240-8 (Version None)
Quarter: 2005Q4

REPORT INFORMATION
  Report Type: 
  Country: None (occurrence: None)
  Receive Date: 20051024
  Receipt Date: 20051014
  Transmission Date: 20060501
  Serious: Yes (Hospitalization)
  Sender: FDA-Public Use
  Company Number: 200519169GDDC

PATIENT
  Age: 65 Year
  Sex: Female

DRUGS (6)
  1. FLAGYL [Suspect]
     Route: 042
     Dates: start: 20041001, end: 20041004
  2. MERONEM [Suspect]
     Route: 042
     Dates: start: 20041002, end: 20041004
  3. LEVAXIN [Concomitant]
  4. ACETAMINOPHEN [Concomitant]
  5. WARAN [Concomitant]
  6. TRADOLAN [Concomitant]

REACTIONS (5)
  - DIALYSIS [None]
  - DRUG HYPERSENSITIVITY [None]
  - ERYTHEMA MULTIFORME [None]
  - LEUKOCYTOCLASTIC VASCULITIS [None]
  - RENAL FAILURE [None]
